FAERS Safety Report 10230689 (Version 1)
Quarter: 2014Q2

REPORT INFORMATION
  Report Type: Spontaneous
  Country: US (occurrence: US)
  Receive Date: 20140611
  Receipt Date: 20140611
  Transmission Date: 20141212
  Serious: Yes (Other)
  Sender: FDA-Public Use
  Company Number: US-PFIZER INC-2014158541

PATIENT
  Age: 69 Year
  Sex: Male

DRUGS (1)
  1. XELJANZ [Suspect]
     Dosage: 5 MG, 2X/DAY (ONE IN THE MORNING AND ONE IN THE EVENING)
     Dates: start: 20140401, end: 20140531

REACTIONS (2)
  - Wound infection [Unknown]
  - Hepatic enzyme increased [Unknown]
